FAERS Safety Report 19156316 (Version 1)
Quarter: 2021Q2

REPORT INFORMATION
  Report Type: Spontaneous
  Country: US (occurrence: US)
  Receive Date: 20210419
  Receipt Date: 20210419
  Transmission Date: 20210717
  Serious: No
  Sender: FDA-Public Use
  Company Number: US-ABBVIE-21K-163-3827444-00

PATIENT
  Sex: Female

DRUGS (2)
  1. LUPRON DEPOT?PED [Suspect]
     Active Substance: LEUPROLIDE ACETATE
     Route: 030
     Dates: start: 20210317
  2. LUPRON DEPOT?PED [Suspect]
     Active Substance: LEUPROLIDE ACETATE
     Indication: PRECOCIOUS PUBERTY
     Route: 030

REACTIONS (1)
  - Abscess sterile [Unknown]

NARRATIVE: CASE EVENT DATE: 202103
